FAERS Safety Report 8276278-3 (Version None)
Quarter: 2012Q2

REPORT INFORMATION
  Report Type: 
  Country: None (occurrence: None)
  Receive Date: 20120412
  Receipt Date: 20120403
  Transmission Date: 20120825
  Serious: Yes (Hospitalization)
  Sender: FDA-Public Use
  Company Number: PHEH2012US007342

PATIENT
  Age: 46 Year
  Sex: Female
  Weight: 72.562 kg

DRUGS (1)
  1. GLEEVEC [Suspect]
     Indication: LEUKAEMIA
     Dosage: 400 MG DAILY
     Route: 048
     Dates: start: 20100111

REACTIONS (2)
  - INFECTION [None]
  - PNEUMONIA [None]
